FAERS Safety Report 9973282 (Version 2)
Quarter: 2014Q1

REPORT INFORMATION
  Report Type: Report from Study
  Country: US (occurrence: US)
  Receive Date: 20140306
  Receipt Date: 20140306
  Transmission Date: 20141002
  Serious: Yes (Hospitalization)
  Sender: FDA-Public Use
  Company Number: US-ABBVIE-13P-163-1153964-00

PATIENT
  Age: 20 Year
  Sex: Female
  Weight: 63.56 kg

DRUGS (5)
  1. HUMIRA [Suspect]
     Indication: CROHN^S DISEASE
     Route: 058
     Dates: end: 201308
  2. HUMIRA [Suspect]
     Route: 058
     Dates: start: 201309, end: 201310
  3. ENTOCORT [Concomitant]
     Indication: CROHN^S DISEASE
  4. ASACOL [Concomitant]
     Indication: CROHN^S DISEASE
  5. UNKNOWN [Concomitant]
     Indication: CONTRACEPTION

REACTIONS (5)
  - Pneumonia [Recovered/Resolved]
  - Crohn^s disease [Recovered/Resolved]
  - Ear infection [Recovered/Resolved]
  - Pneumonia [Recovered/Resolved]
  - Sinusitis [Recovered/Resolved]
